FAERS Safety Report 14966161 (Version 1)
Quarter: 2018Q2

REPORT INFORMATION
  Report Type: Report from Study
  Country: TW (occurrence: HR)
  Receive Date: 20180603
  Receipt Date: 20180603
  Transmission Date: 20180711
  Serious: Yes (Hospitalization)
  Sender: FDA-Public Use
  Company Number: HR-YUNG SHIN PHARMACEUTICAL IND.  CO., LTD.-2048906

PATIENT
  Sex: Female

DRUGS (1)
  1. CEPHALEXIN (CEPHALEXIN) UNKNOWN [Suspect]
     Active Substance: CEPHALEXIN

REACTIONS (2)
  - Pancreatitis acute [Recovered/Resolved]
  - Biliary dilatation [None]
